FAERS Safety Report 8316693-2 (Version None)
Quarter: 2012Q2

REPORT INFORMATION
  Report Type: 
  Country: None (occurrence: None)
  Receive Date: 20120425
  Receipt Date: 20120409
  Transmission Date: 20120825
  Serious: Yes (Death)
  Sender: FDA-Public Use
  Company Number: 2011-443

PATIENT
  Age: 74 Year
  Sex: Male

DRUGS (10)
  1. FOSAMAX [Concomitant]
  2. COLACE (DOCUSATE SODIUM) [Concomitant]
  3. XANAX [Concomitant]
  4. CLOZAPINE (FAZACLO) [Suspect]
     Dosage: 75 MG, QD, ORAL
     Route: 048
     Dates: start: 20071210, end: 20110804
  5. CHLORPROMAZINE [Concomitant]
  6. ACETAMINOPHEN [Concomitant]
  7. ASPIRIN [Concomitant]
  8. LISINOPRIL [Concomitant]
  9. VOCODIN (HYDROCODONE BITARTRATE, PARACETAMOL) [Concomitant]
  10. DEPAKOTE [Concomitant]

REACTIONS (1)
  - HOSPICE CARE [None]
